FAERS Safety Report 18168715 (Version 1)
Quarter: 2020Q3

REPORT INFORMATION
  Report Type: Spontaneous
  Country: DE (occurrence: DE)
  Receive Date: 20200819
  Receipt Date: 20200819
  Transmission Date: 20201103
  Serious: Yes (Hospitalization)
  Sender: FDA-Public Use
  Company Number: DE-TEVA-2020-DE-1815361

PATIENT
  Age: 62 Year
  Sex: Female
  Weight: 74 kg

DRUGS (14)
  1. GRANISETRON BETA 2MG [Concomitant]
     Dosage: 2 MG, 1X
  2. BISOPROLOL [Concomitant]
     Active Substance: BISOPROLOL
     Dosage: 10 MILLIGRAM DAILY; 1?0?0?0
  3. DAPAGLIFLOZIN. [Concomitant]
     Active Substance: DAPAGLIFLOZIN
     Dosage: 10 MILLIGRAM DAILY; 0?1?0?0
  4. VOMEX [Concomitant]
     Active Substance: DIMENHYDRINATE
     Dosage: 1 DOSAGE FORMS DAILY; 0?1?0?0
  5. ATEZOLIZUMAB. [Suspect]
     Active Substance: ATEZOLIZUMAB
     Dosage: LAST 17?02?2020
  6. PREGABALIN. [Concomitant]
     Active Substance: PREGABALIN
     Dosage: 25 MG, 2X
  7. PACLITAXEL. [Suspect]
     Active Substance: PACLITAXEL
     Dosage: LAST 17?02?2020
  8. HYDROCHLOROTHIAZID [Concomitant]
     Active Substance: HYDROCHLOROTHIAZIDE
     Dosage: 25 MILLIGRAM DAILY; 1?0?0?0
  9. KALINOR?RETARD P 600MG [Concomitant]
     Dosage: 1800 MILLIGRAM DAILY; 1?1?1?0
  10. IBUPROFEN. [Concomitant]
     Active Substance: IBUPROFEN
     Dosage: 600 MG, 4X
  11. MCP [Concomitant]
     Active Substance: METOCLOPRAMIDE HYDROCHLORIDE
     Dosage: 10 MG, 3X
  12. PREDNISOLON [Concomitant]
     Active Substance: PREDNISOLONE
     Dosage: 55 MG, FOR 3 DAYS
  13. JANUMET [Concomitant]
     Active Substance: METFORMIN HYDROCHLORIDE\SITAGLIPTIN PHOSPHATE
     Dosage: 2 DOSAGE FORMS DAILY; 850|50 MG, 1?0?1?0
  14. HYDROMORPHON [Concomitant]
     Active Substance: HYDROMORPHONE
     Dosage: 8 MILLIGRAM DAILY; 1?0?1?0

REACTIONS (5)
  - Flatulence [Unknown]
  - General physical health deterioration [Unknown]
  - Vomiting [Unknown]
  - Abdominal distension [Unknown]
  - Nausea [Unknown]
